FAERS Safety Report 16047961 (Version 2)
Quarter: 2019Q2

REPORT INFORMATION
  Report Type: Report from Study
  Country: GB (occurrence: GB)
  Receive Date: 20190307
  Receipt Date: 20190410
  Transmission Date: 20190711
  Serious: Yes (Death)
  Sender: FDA-Public Use
  Company Number: GB-TAKEDA-2019TUS010819

PATIENT

DRUGS (1)
  1. IXAZOMIB [Suspect]
     Active Substance: IXAZOMIB
     Indication: PRODUCT USED FOR UNKNOWN INDICATION
     Dosage: UNK
     Route: 065

REACTIONS (2)
  - Head injury [Fatal]
  - Fall [Unknown]
